FAERS Safety Report 17670587 (Version 1)
Quarter: 2020Q2

REPORT INFORMATION
  Report Type: Spontaneous
  Country: US (occurrence: US)
  Receive Date: 20200414
  Receipt Date: 20200414
  Transmission Date: 20200713
  Serious: No
  Sender: FDA-Public Use
  Company Number: None

PATIENT
  Age: 35 Year
  Sex: Female

DRUGS (1)
  1. LUPRON DEPOT [Suspect]
     Active Substance: LEUPROLIDE ACETATE
     Dosage: ?          OTHER FREQUENCY:OTHER;?
     Route: 030
     Dates: start: 202002, end: 202004

REACTIONS (6)
  - Vomiting [None]
  - Hyperhidrosis [None]
  - Back pain [None]
  - Sleep disorder [None]
  - Irritability [None]
  - Nausea [None]

NARRATIVE: CASE EVENT DATE: 20200414
